FAERS Safety Report 4833242-1 (Version None)
Quarter: 2005Q4

REPORT INFORMATION
  Report Type: 
  Country: None (occurrence: None)
  Receive Date: 20051117
  Receipt Date: 20051108
  Transmission Date: 20060501
  Serious: Yes (Other)
  Sender: FDA-Public Use
  Company Number: CA_051008821

PATIENT
  Age: 12 Year
  Sex: Male
  Weight: 28 kg

DRUGS (1)
  1. STRATTERA [Suspect]
     Dosage: 25 MG DAY
     Dates: start: 20050815, end: 20051001

REACTIONS (7)
  - AGGRESSION [None]
  - AGITATION [None]
  - ANXIETY [None]
  - DISTURBANCE IN ATTENTION [None]
  - FRUSTRATION [None]
  - MAJOR DEPRESSION [None]
  - SUICIDAL IDEATION [None]
